FAERS Safety Report 21498380 (Version 1)
Quarter: 2022Q4

REPORT INFORMATION
  Report Type: Spontaneous
  Country: US (occurrence: US)
  Receive Date: 20221024
  Receipt Date: 20221024
  Transmission Date: 20230113
  Serious: Yes (Hospitalization, Other)
  Sender: FDA-Public Use
  Company Number: US-ELI_LILLY_AND_COMPANY-US202210006861

PATIENT
  Age: 76 Year
  Sex: Male

DRUGS (9)
  1. CYMBALTA [Suspect]
     Active Substance: DULOXETINE HYDROCHLORIDE
     Indication: Affective disorder
     Dosage: 60 MG, UNKNOWN
     Route: 065
     Dates: start: 2015
  2. ARIPIPRAZOLE [Suspect]
     Active Substance: ARIPIPRAZOLE
     Indication: Affective disorder
     Dosage: 15 MG, DAILY
     Route: 065
  3. ARIPIPRAZOLE [Suspect]
     Active Substance: ARIPIPRAZOLE
     Dosage: 10 MG, DAILY
     Route: 065
     Dates: start: 202201, end: 202204
  4. PRISTIQ EXTENDED-RELEASE [Suspect]
     Active Substance: DESVENLAFAXINE SUCCINATE
     Indication: Affective disorder
     Dosage: 50 MG, UNKNOWN
     Route: 065
     Dates: start: 201906
  5. WELLBUTRIN [Suspect]
     Active Substance: BUPROPION HYDROCHLORIDE
     Indication: Affective disorder
     Dosage: 300 MG, UNKNOWN
     Route: 065
     Dates: start: 2015, end: 20190612
  6. LITHIUM [Concomitant]
     Active Substance: LITHIUM
     Indication: Depression
  7. LOSARTAN [Concomitant]
     Active Substance: LOSARTAN
     Indication: Blood pressure measurement
  8. AMLODIPINE [Concomitant]
     Active Substance: AMLODIPINE BESYLATE
     Indication: Blood pressure measurement
  9. REMERON [Concomitant]
     Active Substance: MIRTAZAPINE
     Indication: Depression

REACTIONS (9)
  - Tardive dyskinesia [Recovering/Resolving]
  - Swollen tongue [Unknown]
  - Musculoskeletal stiffness [Recovering/Resolving]
  - Feeling abnormal [Recovered/Resolved]
  - Tremor [Unknown]
  - Emotional disorder [Unknown]
  - Dry mouth [Unknown]
  - Depressed mood [Not Recovered/Not Resolved]
  - Drug ineffective [Unknown]

NARRATIVE: CASE EVENT DATE: 20210601
